FAERS Safety Report 16711092 (Version 1)
Quarter: 2019Q3

REPORT INFORMATION
  Report Type: Spontaneous
  Country: US (occurrence: US)
  Receive Date: 20190816
  Receipt Date: 20190816
  Transmission Date: 20191004
  Serious: No
  Sender: FDA-Public Use
  Company Number: US-BAYER-2019-149973

PATIENT
  Age: 78 Year
  Sex: Male
  Weight: 100 kg

DRUGS (6)
  1. SIMVASTATIN. [Concomitant]
     Active Substance: SIMVASTATIN
  2. METOPROLOL. [Concomitant]
     Active Substance: METOPROLOL
  3. FINASTERIDE. [Concomitant]
     Active Substance: FINASTERIDE
  4. MIRALAX [Suspect]
     Active Substance: POLYETHYLENE GLYCOL 3350
     Indication: GASTROINTESTINAL DISORDER
     Route: 048
     Dates: start: 2009
  5. LISINOPRIL. [Concomitant]
     Active Substance: LISINOPRIL
  6. XARELTO [Concomitant]
     Active Substance: RIVAROXABAN

REACTIONS (1)
  - Incorrect dose administered [Unknown]
